FAERS Safety Report 6633192-4 (Version None)
Quarter: 2010Q1

REPORT INFORMATION
  Report Type: 
  Country: None (occurrence: None)
  Receive Date: 20100312
  Receipt Date: 20100308
  Transmission Date: 20100710
  Serious: Yes (Death)
  Sender: FDA-Public Use
  Company Number: PHHY2010JP10411

PATIENT
  Age: 56 Year
  Sex: Female

DRUGS (4)
  1. TEGRETOL [Suspect]
     Dosage: 30 DF,
     Route: 048
  2. GLYSENNID [Suspect]
     Indication: LAXATIVE SUPPORTIVE CARE
     Route: 048
  3. HIRNAMIN [Concomitant]
     Dosage: 30 DF,
     Route: 048
  4. HALCION [Concomitant]
     Dosage: 30 DF, UNK
     Route: 048

REACTIONS (4)
  - COMPLETED SUICIDE [None]
  - DRUG TOXICITY [None]
  - MULTIPLE DRUG OVERDOSE INTENTIONAL [None]
  - OVERDOSE [None]
